FAERS Safety Report 8694643 (Version 3)
Quarter: 2012Q4

REPORT INFORMATION
  Report Type: 
  Country: JP (occurrence: JP)
  Receive Date: 20120731
  Receipt Date: 20120904
  Transmission Date: 20130627
  Serious: Yes (Hospitalization)
  Sender: FDA-Public Use
  Company Number: JP-GLAXOSMITHKLINE-B0818530A

PATIENT
  Age: 83 Year
  Sex: Female
  Weight: 52 kg

DRUGS (5)
  1. VALTREX [Suspect]
     Indication: HERPES ZOSTER
     Dosage: 3000MG Per day
     Route: 048
     Dates: start: 20120717, end: 20120723
  2. ZOVIRAX [Suspect]
     Indication: HERPES ZOSTER
     Dosage: 250MG Per day
     Route: 042
     Dates: start: 20120717, end: 20120721
  3. PREMINENT [Concomitant]
     Indication: HYPERTENSION
     Dosage: 1IUAX Per day
     Route: 048
  4. PRAVASTATIN SODIUM [Concomitant]
     Indication: DYSLIPIDAEMIA
     Dosage: 10MG Per day
     Route: 048
  5. ATELEC [Concomitant]
     Indication: HYPERTENSION
     Dosage: 20MG Per day
     Route: 048

REACTIONS (9)
  - Renal failure acute [Recovering/Resolving]
  - Dysarthria [Recovering/Resolving]
  - Asthenia [Recovering/Resolving]
  - Blood urea increased [Unknown]
  - Blood creatinine increased [Unknown]
  - Blood uric acid increased [Unknown]
  - Blood potassium increased [Unknown]
  - Communication disorder [Unknown]
  - Nervous system disorder [Recovering/Resolving]
